FAERS Safety Report 15487832 (Version 1)
Quarter: 2018Q4

REPORT INFORMATION
  Report Type: Spontaneous
  Country: IT (occurrence: IT)
  Receive Date: 20181011
  Receipt Date: 20181011
  Transmission Date: 20190205
  Serious: Yes (Other)
  Sender: FDA-Public Use
  Company Number: IT-ALLERGAN-1848733US

PATIENT
  Age: 81 Year
  Sex: Female

DRUGS (2)
  1. NEBIVOLOL HCL - BP [Suspect]
     Active Substance: NEBIVOLOL
     Indication: HYPERTENSION
     Dosage: 1 DF, PER DAY
     Route: 048
  2. ENALAPRIL [Suspect]
     Active Substance: ENALAPRIL
     Indication: HYPERTENSION
     Dosage: 1 DF, PER DAY
     Route: 048

REACTIONS (2)
  - Hypertensive crisis [Recovering/Resolving]
  - Headache [Recovering/Resolving]

NARRATIVE: CASE EVENT DATE: 20180624
